FAERS Safety Report 9647343 (Version 2)
Quarter: 2013Q4

REPORT INFORMATION
  Report Type: Report from Study
  Country: JP (occurrence: JP)
  Receive Date: 20131027
  Receipt Date: 20131027
  Transmission Date: 20140711
  Serious: Yes (Hospitalization)
  Sender: FDA-Public Use
  Company Number: JP-009507513-1309JPN004853

PATIENT
  Age: 50 Year
  Sex: Male
  Weight: 75 kg

DRUGS (15)
  1. CANCIDAS FOR INTRAVENOUS DRIP INFUSION 50MG [Suspect]
     Indication: FEBRILE NEUTROPENIA
     Dosage: 50 MG, QD
     Route: 041
     Dates: start: 20130720, end: 20130729
  2. CANCIDAS FOR INTRAVENOUS DRIP INFUSION 70MG [Suspect]
     Indication: FEBRILE NEUTROPENIA
     Dosage: 70 MG, QD
     Route: 048
     Dates: start: 20130719, end: 20130719
  3. MYCOSYST [Concomitant]
     Indication: FEBRILE NEUTROPENIA
     Dosage: 200 MG, QD
     Route: 048
     Dates: start: 20130711, end: 20130719
  4. MYCOSYST [Concomitant]
     Indication: FUNGAL INFECTION
  5. FINIBAX [Concomitant]
     Indication: FEBRILE NEUTROPENIA
     Dosage: 1 G, TID
     Route: 051
     Dates: start: 20130718, end: 20130729
  6. GRAN [Concomitant]
     Indication: FEBRILE NEUTROPENIA
     Dosage: 75 MICROGRAM, QD
     Route: 051
     Dates: start: 20130713, end: 20130720
  7. SOLITA T-3 [Concomitant]
     Indication: FLUID REPLACEMENT
     Dosage: 500 ML, TID
     Route: 051
     Dates: start: 20130705, end: 20130729
  8. MAGMITT [Concomitant]
     Indication: CONSTIPATION
     Dosage: 500 MG, TID
     Route: 048
     Dates: start: 20130718
  9. LOXONIN [Concomitant]
     Indication: ANTIPYRESIS
     Dosage: 60 MG, PRN
     Route: 048
     Dates: start: 20130718, end: 20130719
  10. OLMETEC [Concomitant]
     Indication: HYPERTENSION
     Dosage: 10 MG, QD
     Route: 048
     Dates: start: 2006
  11. ATELEC [Concomitant]
     Indication: HYPERTENSION
     Dosage: 10 MG, QD
     Route: 048
     Dates: start: 2006
  12. CARDENALIN [Concomitant]
     Indication: HYPERTENSION
     Dosage: 0.5 MG, QD
     Route: 048
     Dates: start: 2006
  13. GASTER D [Concomitant]
     Indication: GASTRIC ULCER
     Dosage: 20 MG, QD
     Route: 048
     Dates: start: 20130613
  14. METHYCOBAL [Concomitant]
     Indication: NEUROPATHY PERIPHERAL
     Dosage: 0.5 MG, TID
     Route: 048
     Dates: start: 20130621
  15. BAKTAR [Concomitant]
     Indication: ANTIFUNGAL PROPHYLAXIS
     Dosage: TAKEN 2 DAYS PER WEEK
     Route: 048
     Dates: start: 20130712

REACTIONS (2)
  - Abscess limb [Recovering/Resolving]
  - Blood lactate dehydrogenase increased [Recovering/Resolving]
